FAERS Safety Report 17907753 (Version 1)
Quarter: 2020Q2

REPORT INFORMATION
  Report Type: Spontaneous
  Country: DE (occurrence: DE)
  Receive Date: 20200617
  Receipt Date: 20200617
  Transmission Date: 20200714
  Serious: Yes (Other)
  Sender: FDA-Public Use
  Company Number: DE-TEVA-2020-DE-1787949

PATIENT
  Age: 62 Year
  Sex: Male
  Weight: 86 kg

DRUGS (4)
  1. BRINTELLIX 10MG [Concomitant]
     Indication: DEPRESSION
     Dosage: CONTINUOUS MEDICATION, UNIT DOSE: 10 MG
     Route: 048
  2. LAMOTRIGIN 50 MG [Concomitant]
     Active Substance: LAMOTRIGINE
     Indication: DEPRESSION
     Dosage: CONTINUOUS MEDICATION, UNIT DOSE: 50 MG
     Route: 048
  3. L-THYROXIN HENNIG 75 MICRO G [Concomitant]
     Indication: HYPOTHYROIDISM
     Dosage: CONTINUOUS MEDICATION, UNIT DOSE: 75 MICROGRAM
     Route: 048
  4. HYDROXYCHLOROQUIN [Suspect]
     Active Substance: HYDROXYCHLOROQUINE SULFATE
     Indication: COVID-19
     Dosage: 600 MG
     Route: 048
     Dates: start: 20200406, end: 20200411

REACTIONS (3)
  - Eye laser surgery [Unknown]
  - Off label use [Unknown]
  - Retinal tear [Not Recovered/Not Resolved]

NARRATIVE: CASE EVENT DATE: 20200406
